FAERS Safety Report 20028630 (Version 1)
Quarter: 2021Q4

REPORT INFORMATION
  Report Type: Spontaneous
  Country: DE (occurrence: DE)
  Receive Date: 20211103
  Receipt Date: 20211103
  Transmission Date: 20220303
  Serious: Yes (Hospitalization, Other)
  Sender: FDA-Public Use
  Company Number: DE-ADRED-06904-01

PATIENT
  Age: 64 Year
  Sex: Male

DRUGS (2)
  1. ESCITALOPRAM [Suspect]
     Active Substance: ESCITALOPRAM OXALATE
     Indication: Product used for unknown indication
     Dosage: 10 MILLIGRAM, QD (1-0-0-0)
  2. LEVOTHYROXINE SODIUM [Concomitant]
     Active Substance: LEVOTHYROXINE SODIUM
     Dosage: 125 ?G, 1-0-0-0

REACTIONS (7)
  - Seizure [Unknown]
  - Memory impairment [Unknown]
  - Burnout syndrome [Unknown]
  - Fall [Unknown]
  - Insomnia [Unknown]
  - Retrograde amnesia [Unknown]
  - Disorientation [Unknown]
